FAERS Safety Report 25735317 (Version 1)
Quarter: 2025Q3

REPORT INFORMATION
  Report Type: Spontaneous
  Country: US (occurrence: None)
  Receive Date: 20250827
  Receipt Date: 20250827
  Transmission Date: 20251021
  Serious: Yes (Death)
  Sender: FDA-CTU
  Company Number: None

PATIENT
  Age: 12 Year
  Sex: Male

DRUGS (18)
  1. EPIDIOLEX [Suspect]
     Active Substance: CANNABIDIOL
     Indication: Epilepsy
     Dates: start: 20220216
  2. Fleet Bisacodyl 10mg/30ml enema [Concomitant]
  3. Sodium Chloride 1gm tablet [Concomitant]
  4. Docusate sodium 50mg/5ml solution [Concomitant]
  5. LEVOTHYROXINE [Concomitant]
     Active Substance: LEVOTHYROXINE
  6. Fluticasone 44mcg HFa [Concomitant]
  7. Symbicort 80/4.5mcg [Concomitant]
  8. Trazodone 100mg tablet [Concomitant]
  9. GUANFACINE [Concomitant]
     Active Substance: GUANFACINE
  10. Cetirizine 1mg/ml solution [Concomitant]
  11. Polyethylene Glycol powder [Concomitant]
  12. Albuterol hfh 90mcg/inhl [Concomitant]
  13. QUETIAPINE [Concomitant]
     Active Substance: QUETIAPINE
  14. Fluticasone 50mcg nasal spray [Concomitant]
  15. Pregabalin 20mg/ml solution [Concomitant]
  16. Montelukast 4mg granules [Concomitant]
  17. Clobazam 20mg tablets [Concomitant]
  18. Fe-vite drops 15mg/ml [Concomitant]

REACTIONS (1)
  - Death [None]
